FAERS Safety Report 8225540-9 (Version None)
Quarter: 2012Q1

REPORT INFORMATION
  Report Type: 
  Country: None (occurrence: None)
  Receive Date: 20120321
  Receipt Date: 20120306
  Transmission Date: 20120608
  Serious: Yes (Other)
  Sender: FDA-Public Use
  Company Number: US-CELGENEUS-163-21880-12020901

PATIENT
  Age: 68 Year
  Sex: Male
  Weight: 78.4 kg

DRUGS (76)
  1. DEXAMETHASONE [Suspect]
     Dosage: 20 MILLIGRAM
     Route: 048
     Dates: start: 20070510, end: 20070513
  2. LOVENOX [Concomitant]
     Dosage: 40 MILLIGRAM
     Route: 058
  3. MEGACE [Concomitant]
     Dosage: 400MG/10ML
     Route: 048
  4. MYCAMINE [Concomitant]
     Dosage: 100 MILLILITER
     Route: 041
  5. OS-CAL 500 + D [Concomitant]
     Dosage: 1 TABLET
     Route: 048
  6. VITAMIN D [Concomitant]
     Dosage: 5000UNIT
     Route: 048
  7. ALBUTEROL SULFATE [Concomitant]
     Dosage: 2.5 MILLIGRAM
     Route: 055
  8. CHLORHEXIDINE GLUCONATE [Concomitant]
     Dosage: 15 MILLILITER
     Route: 048
  9. EFFEXOR XR [Concomitant]
     Dosage: 150 MILLIGRAM
     Route: 048
     Dates: start: 20070524
  10. LEXAPRO [Concomitant]
     Dosage: 10 MILLIGRAM
     Route: 048
  11. MAG OXIDE [Concomitant]
     Dosage: 100 MILLIGRAM
     Route: 048
  12. REVLIMID [Suspect]
     Dosage: 25 MILLIGRAM
     Route: 048
     Dates: start: 20060223, end: 20060315
  13. REVLIMID [Suspect]
     Dosage: 25 MILLIGRAM
     Route: 048
     Dates: start: 20060629, end: 20060719
  14. REVLIMID [Suspect]
     Dosage: 25 MILLIGRAM
     Route: 048
     Dates: start: 20060727, end: 20060816
  15. REVLIMID [Suspect]
     Dosage: 25 MILLIGRAM
     Route: 048
     Dates: start: 20061019, end: 20061108
  16. REVLIMID [Suspect]
     Dosage: 25 MILLIGRAM
     Route: 048
     Dates: start: 20070607, end: 20070822
  17. DEXAMETHASONE [Suspect]
     Dosage: 20 MILLIGRAM
     Route: 048
     Dates: start: 20061019, end: 20070501
  18. COUMADIN [Concomitant]
     Dosage: 2.5-10MG
     Route: 065
  19. PHENYLEPHRINE HCL [Concomitant]
     Route: 065
  20. DIPHENHYDRAMINE HCL [Concomitant]
     Indication: PREMEDICATION
     Dosage: 25 MILLIGRAM
     Route: 048
  21. LACTOBACILLUS GG [Concomitant]
     Dosage: 1
     Route: 048
  22. LORTAB [Concomitant]
     Indication: PAIN
     Dosage: 1
     Route: 048
  23. MAG OXIDE [Concomitant]
     Dosage: 400 MILLIGRAM
     Route: 048
  24. NEUPOGEN [Concomitant]
     Indication: FULL BLOOD COUNT DECREASED
     Route: 065
  25. PLAVIX [Concomitant]
     Dosage: 75 MILLIGRAM
     Route: 065
  26. WHOLE BLOOD [Concomitant]
     Indication: FULL BLOOD COUNT DECREASED
     Route: 041
  27. DEXAMETHASONE [Suspect]
     Dosage: 40 MILLIGRAM
     Route: 048
     Dates: start: 20060323, end: 20060411
  28. ASPIRIN [Concomitant]
     Dosage: 325 MILLIGRAM
     Route: 048
  29. NIFEREX-150 FORTE [Concomitant]
     Dosage: 1 CAPSULE
     Route: 048
  30. IRON SULFATETHIAMIN COMPOUND TAB [Concomitant]
     Dosage: 325 MILLIGRAM
     Route: 065
  31. PLATELETS [Concomitant]
     Indication: THROMBOCYTOPENIA
     Route: 041
  32. REVLIMID [Suspect]
     Dosage: 25 MILLIGRAM
     Route: 048
     Dates: start: 20070510, end: 20070515
  33. DEXAMETHASONE [Suspect]
     Dosage: 40 MILLIGRAM
     Route: 048
     Dates: start: 20060420, end: 20060509
  34. SODIUM BICARBONATE [Concomitant]
     Dosage: 650 MILLIGRAM
     Route: 065
  35. NEPHROCAPS [Concomitant]
     Dosage: 1 CAPSULE
     Route: 048
  36. PAMIDRONATE DISODIUM [Concomitant]
     Route: 065
  37. REVLIMID [Suspect]
     Dosage: 25 MILLIGRAM
     Route: 048
     Dates: start: 20070118, end: 20070502
  38. DEXAMETHASONE [Suspect]
     Dosage: 40 MILLIGRAM
     Route: 048
     Dates: start: 20060629, end: 20060718
  39. MEGESTROL ACETATE [Concomitant]
     Dosage: 800 MILLIGRAM
     Route: 048
  40. FINASTERIDE [Concomitant]
     Dosage: 5 MILLIGRAM
     Route: 048
  41. TOPROL-XL [Concomitant]
     Dosage: 25 MILLIGRAM
     Route: 048
  42. LORAZEPAM [Concomitant]
     Indication: ANXIETY
     Dosage: 1 MILLIGRAM
     Route: 065
  43. OXYCODONE HCL [Concomitant]
     Dosage: 5 MILLIGRAM
     Route: 065
  44. HEPARIN [Concomitant]
     Indication: ATRIAL FIBRILLATION
     Dosage: 4000 UNITS
     Route: 058
  45. REVLIMID [Suspect]
     Dosage: 25 MILLIGRAM
     Route: 048
     Dates: start: 20070830, end: 20070919
  46. PROTONIX [Concomitant]
     Dosage: 40
     Route: 041
  47. MEGACE [Concomitant]
     Dosage: 625MG/5ML
     Route: 048
  48. PERFUSIONIST'S ACD FORMULA [Concomitant]
     Dosage: 5 MILLILITER
     Route: 041
  49. MAGIC MOUTHWASH [Concomitant]
     Dosage: 5 MILLILITER
     Route: 048
  50. AMIODARONE HYDROCHLORIDE [Concomitant]
     Dosage: 100 MILLIGRAM
     Route: 048
  51. FLUDROCORTISONE ACETATE [Concomitant]
     Dosage: .1 MILLIGRAM
     Route: 065
  52. SKELAXIN [Concomitant]
     Dosage: 800 MILLIGRAM
     Route: 065
  53. REVLIMID [Suspect]
     Dosage: 25 MILLIGRAM
     Route: 048
     Dates: start: 20060323, end: 20060412
  54. REVLIMID [Suspect]
     Dosage: 25 MILLIGRAM
     Route: 048
     Dates: start: 20060420, end: 20060510
  55. REVLIMID [Suspect]
     Dosage: 25 MILLIGRAM
     Route: 048
     Dates: start: 20061122, end: 20061212
  56. DEXAMETHASONE [Suspect]
     Dosage: 40 MILLIGRAM
     Route: 048
     Dates: start: 20060223, end: 20060314
  57. DEXAMETHASONE [Suspect]
     Dosage: 40 MILLIGRAM
     Route: 065
  58. ASPIRIN [Concomitant]
     Dosage: 81 MILLIGRAM
     Route: 048
  59. PANTOPRAZOLE [Concomitant]
     Dosage: 40 MILLIGRAM
     Route: 048
  60. GUAIFENESIN/DEXTROMETHORPHAN [Concomitant]
     Indication: COUGH
     Dosage: 10 MILLILITER
     Route: 048
  61. LEVOTHYROXINE SODIUM [Concomitant]
     Dosage: .1 MILLIGRAM
     Route: 048
  62. ACETAMINOPHEN [Concomitant]
     Dosage: 650 MILLIGRAM
     Route: 048
  63. FLOMAX [Concomitant]
     Dosage: .4 MILLIGRAM
     Route: 048
  64. REVLIMID [Suspect]
     Dosage: 25 MILLIGRAM
     Route: 048
     Dates: start: 20060921, end: 20061011
  65. REVLIMID [Suspect]
     Dosage: 25 MILLIGRAM
     Route: 048
     Dates: start: 20061221, end: 20070110
  66. DEXAMETHASONE [Suspect]
     Dosage: 40 MILLIGRAM
     Route: 048
     Dates: start: 20060727, end: 20060815
  67. DEXAMETHASONE [Suspect]
     Dosage: 40 MILLIGRAM
     Route: 048
     Dates: start: 20060824, end: 20060912
  68. DEXAMETHASONE [Suspect]
     Dosage: 20 MILLIGRAM
     Route: 048
     Dates: start: 20060921, end: 20061010
  69. DEXAMETHASONE [Suspect]
     Dosage: 20 MILLIGRAM
     Route: 048
     Dates: start: 20070607, end: 20070821
  70. DEXAMETHASONE [Suspect]
     Dosage: 20 MILLIGRAM
     Route: 048
     Dates: start: 20070830, end: 20070918
  71. AMIODARONE HYDROCHLORIDE [Concomitant]
     Dosage: 200 MILLIGRAM
     Route: 048
  72. CHLORASEPTIC [Concomitant]
     Dosage: 1 SPRAY
     Route: 048
  73. BACTRIM DS [Concomitant]
     Dosage: 800-160MG
     Route: 048
  74. KIONEX [Concomitant]
     Dosage: 15 GRAM
     Route: 048
  75. PRILOSEC [Concomitant]
     Dosage: 20 MILLIGRAM
     Route: 065
  76. RED BLOOD CELLS [Concomitant]
     Indication: FULL BLOOD COUNT DECREASED
     Route: 041

REACTIONS (1)
  - 5Q MINUS SYNDROME [None]
